FAERS Safety Report 10054936 (Version 2)
Quarter: 2014Q2

REPORT INFORMATION
  Report Type: Spontaneous
  Country: JP (occurrence: JP)
  Receive Date: 20140402
  Receipt Date: 20140416
  Transmission Date: 20141212
  Serious: Yes (Other)
  Sender: FDA-Public Use
  Company Number: JP-TAKEDA-2014TJP004407

PATIENT
  Age: 80 Year
  Sex: 0

DRUGS (5)
  1. LIOVEL COMBINATION TABLETS LD [Suspect]
     Indication: TYPE 2 DIABETES MELLITUS
     Dosage: 1 DF, QD
     Route: 048
  2. AMARYL [Suspect]
     Dosage: UNK
     Route: 048
  3. CONIEL [Suspect]
     Dosage: UNK
     Route: 048
  4. DEPAS [Concomitant]
     Dosage: UNK
     Route: 048
  5. MEVALOTIN [Concomitant]
     Dosage: UNK
     Route: 048

REACTIONS (1)
  - Blood potassium increased [Not Recovered/Not Resolved]
